FAERS Safety Report 6564280-9 (Version None)
Quarter: 2010Q1

REPORT INFORMATION
  Report Type: 
  Country: None (occurrence: None)
  Receive Date: 20100201
  Receipt Date: 20100125
  Transmission Date: 20100710
  Serious: Yes (Hospitalization)
  Sender: FDA-Public Use
  Company Number: FR-WYE-G05416310

PATIENT
  Age: 45 Year
  Sex: Male

DRUGS (4)
  1. TAZOCILLINE [Suspect]
     Dosage: UNKNOWN
     Route: 042
     Dates: start: 20090623, end: 20090713
  2. FUCIDINE [Suspect]
     Dosage: UNKNOWN
     Route: 048
     Dates: start: 20090713, end: 20090723
  3. PYOSTACINE [Suspect]
     Dosage: UNKNOWN
     Route: 048
     Dates: start: 20090713, end: 20090723
  4. INVANZ [Suspect]
     Dosage: UNKNOWN
     Route: 042
     Dates: start: 20090713, end: 20090719

REACTIONS (4)
  - HAEMATEMESIS [None]
  - HAEMOGLOBIN DECREASED [None]
  - RETCHING [None]
  - THROMBOCYTOPENIA [None]
